FAERS Safety Report 17186031 (Version 1)
Quarter: 2019Q4

REPORT INFORMATION
  Report Type: Spontaneous
  Country: SE (occurrence: SE)
  Receive Date: 20191220
  Receipt Date: 20191220
  Transmission Date: 20200122
  Serious: Yes (Hospitalization)
  Sender: FDA-Public Use
  Company Number: SE-MYLANLABS-2019M1126761

PATIENT
  Sex: Female

DRUGS (2)
  1. LERGIGAN (PROMETHAZINE) [Suspect]
     Active Substance: PROMETHAZINE HYDROCHLORIDE
     Indication: PRODUCT USED FOR UNKNOWN INDICATION
     Dosage: 4 ST A 25 MG
     Route: 048
     Dates: start: 20190527, end: 20190527
  2. AURORIX [Concomitant]
     Active Substance: MOCLOBEMIDE
     Dosage: UNK

REACTIONS (6)
  - Dizziness [Unknown]
  - Tachycardia [Unknown]
  - Accidental overdose [Unknown]
  - Wrong product administered [Unknown]
  - Tremor [Unknown]
  - Dry mouth [Unknown]

NARRATIVE: CASE EVENT DATE: 20190527
